FAERS Safety Report 5890094-9 (Version None)
Quarter: 2008Q3

REPORT INFORMATION
  Report Type: 
  Country: None (occurrence: None)
  Receive Date: 20080919
  Receipt Date: 20080905
  Transmission Date: 20090109
  Serious: No
  Sender: FDA-Public Use
  Company Number: US-B.I. PHARMACEUTICALS,INC./RIDGEFIELD-2008-BP-12625BP

PATIENT
  Age: 83 Year
  Sex: Male

DRUGS (6)
  1. FLOMAX [Suspect]
     Indication: CARCINOID TUMOUR
     Dosage: .4MG
     Route: 048
     Dates: start: 20080808
  2. BENICAR [Concomitant]
     Indication: CARDIAC DISORDER
     Route: 048
  3. NORVASC [Concomitant]
     Indication: CARDIAC DISORDER
     Route: 048
  4. ISOBROMONITRATE [Concomitant]
     Indication: CARDIAC DISORDER
     Route: 048
  5. LUNESTA [Concomitant]
     Indication: SLEEP DISORDER
     Route: 048
  6. ASPIRIN [Concomitant]

REACTIONS (2)
  - DIZZINESS [None]
  - FLUSHING [None]
